FAERS Safety Report 9134433 (Version 1)
Quarter: 2013Q1

REPORT INFORMATION
  Report Type: Spontaneous
  Country: US (occurrence: US)
  Receive Date: 20130304
  Receipt Date: 20130304
  Transmission Date: 20140127
  Serious: Yes (Hospitalization, Disabling, Other)
  Sender: FDA-Public Use
  Company Number: US-ELI_LILLY_AND_COMPANY-US201206008824

PATIENT
  Sex: Male

DRUGS (8)
  1. HUMULIN REGULAR [Suspect]
     Indication: DIABETES MELLITUS
     Dosage: UNK UNK, PRN
     Dates: start: 1980
  2. HUMULIN REGULAR [Suspect]
     Dosage: UNK UNK, PRN
  3. HUMULIN NPH [Suspect]
     Indication: DIABETES MELLITUS
     Dosage: UNK UNK, PRN
     Dates: start: 1980
  4. HUMULIN NPH [Suspect]
     Dosage: 8 U, PRN
  5. HUMULIN NPH [Suspect]
     Dosage: 5 U, PRN
     Dates: end: 201210
  6. HUMALOG LISPRO [Suspect]
     Indication: DIABETES MELLITUS
     Dosage: UNK, PRN
     Dates: start: 2002, end: 201204
  7. LANTUS [Concomitant]
  8. LEVEMIR [Concomitant]
     Dosage: UNK
     Dates: start: 201210

REACTIONS (7)
  - Diabetic ketoacidosis [Recovered/Resolved]
  - Sepsis [Recovered/Resolved]
  - Pneumonia [Recovered/Resolved]
  - Blood glucose decreased [Unknown]
  - Upper respiratory tract infection [Recovered/Resolved]
  - Blood glucose increased [Unknown]
  - Blood glucose decreased [Unknown]
